FAERS Safety Report 5119285-1 (Version None)
Quarter: 2006Q3

REPORT INFORMATION
  Report Type: 
  Country: None (occurrence: None)
  Receive Date: 20060929
  Receipt Date: 20060919
  Transmission Date: 20061208
  Serious: Yes (Hospitalization)
  Sender: FDA-Public Use
  Company Number: SU-2006-005113

PATIENT
  Age: 68 Year
  Sex: Female
  Weight: 108.8633 kg

DRUGS (5)
  1. BENICAR HCT [Suspect]
     Indication: HYPERTENSION
     Dosage: MG QD PO
     Route: 048
     Dates: start: 20060101
  2. HUMALOG MIX [Concomitant]
  3. HUMULIN N [Concomitant]
  4. WARFARIN SODIUM [Concomitant]
  5. SYNTHROID [Concomitant]

REACTIONS (11)
  - ALOPECIA [None]
  - ASTHENIA [None]
  - DIZZINESS [None]
  - FEELING HOT [None]
  - HYPOTENSION [None]
  - MASS [None]
  - OEDEMA PERIPHERAL [None]
  - PRURITUS [None]
  - SEBORRHOEA [None]
  - THROMBOSIS [None]
  - TONGUE DISORDER [None]
